FAERS Safety Report 16484305 (Version 1)
Quarter: 2019Q3

REPORT INFORMATION
  Report Type: Spontaneous
  Country: US (occurrence: US)
  Receive Date: 20190625
  Receipt Date: 20190625
  Transmission Date: 20191004
  Serious: No
  Sender: FDA-Public Use
  Company Number: None

PATIENT
  Age: 66 Year
  Sex: Female
  Weight: 56.25 kg

DRUGS (3)
  1. PAROXETINE 20MG [Suspect]
     Active Substance: PAROXETINE
     Indication: DEPRESSION
     Dosage: ?          QUANTITY:1 TABLET(S);?
     Route: 048
     Dates: start: 20190619, end: 20190620
  2. CLONAZEPAM. [Concomitant]
     Active Substance: CLONAZEPAM
  3. WOMENS MULTIVITAMIN GUMMY [Concomitant]

REACTIONS (6)
  - Mydriasis [None]
  - Paraesthesia [None]
  - Tremor [None]
  - Blood pressure systolic increased [None]
  - Chest pain [None]
  - Diarrhoea [None]

NARRATIVE: CASE EVENT DATE: 20190619
